FAERS Safety Report 6036830-2 (Version None)
Quarter: 2009Q1

REPORT INFORMATION
  Report Type: 
  Country: None (occurrence: None)
  Receive Date: 20090114
  Receipt Date: 20090108
  Transmission Date: 20090719
  Serious: Yes (Other)
  Sender: FDA-Public Use
  Company Number: PHHY2008DE24260

PATIENT
  Sex: Male

DRUGS (3)
  1. ZOMETA [Suspect]
     Indication: PROSTATE CANCER
     Dosage: EVERY 4 WEEKS
     Route: 042
     Dates: start: 20040830, end: 20080729
  2. FLUTAMIDE [Concomitant]
     Indication: PROSTATE CANCER
     Dosage: 3*1
     Dates: start: 20040816, end: 20040916
  3. TRENANTONE [Concomitant]
     Indication: PROSTATE CANCER
     Dosage: 1*/ QUARTER
     Dates: start: 20040816

REACTIONS (1)
  - OSTEONECROSIS [None]
